FAERS Safety Report 23499538 (Version 1)
Quarter: 2024Q1

REPORT INFORMATION
  Report Type: Spontaneous
  Country: US (occurrence: None)
  Receive Date: 20240207
  Receipt Date: 20240207
  Transmission Date: 20240410
  Serious: Yes (Other)
  Sender: FDA-Public Use
  Company Number: None

PATIENT
  Age: 71 Year
  Sex: Female
  Weight: 72 kg

DRUGS (9)
  1. TYRVAYA [Suspect]
     Active Substance: VARENICLINE TARTRATE
     Indication: Dry eye
     Dosage: 1 SPRAY TWICE A DAY NOSTRIL
     Route: 045
     Dates: start: 20240119, end: 20240205
  2. SIMVASTATIN [Concomitant]
     Active Substance: SIMVASTATIN
  3. HYDROCHLOROTHIAZIDE [Concomitant]
     Active Substance: HYDROCHLOROTHIAZIDE
  4. LEVOTHYROXINE [Concomitant]
     Active Substance: LEVOTHYROXINE\LEVOTHYROXINE SODIUM
  5. ZOLPIDEM [Concomitant]
     Active Substance: ZOLPIDEM TARTRATE
  6. Vitamin Gummies (adult) [Concomitant]
  7. FISH OIL [Concomitant]
     Active Substance: FISH OIL
  8. CALCIUM\VITAMIN D [Concomitant]
     Active Substance: CALCIUM\VITAMIN D
  9. MAGNESIUM GLYCINATE [Concomitant]
     Active Substance: MAGNESIUM GLYCINATE

REACTIONS (16)
  - Eye pruritus [None]
  - Eye pain [None]
  - Dry eye [None]
  - Condition aggravated [None]
  - Eyelid rash [None]
  - Rash [None]
  - Chills [None]
  - Hyperhidrosis [None]
  - Nervousness [None]
  - Gingival bleeding [None]
  - Nasal congestion [None]
  - Insomnia [None]
  - Flatulence [None]
  - Agitation [None]
  - Anxiety [None]
  - Hypertension [None]

NARRATIVE: CASE EVENT DATE: 20240128
